FAERS Safety Report 12705883 (Version 3)
Quarter: 2017Q4

REPORT INFORMATION
  Report Type: Spontaneous
  Country: US (occurrence: US)
  Receive Date: 20160901
  Receipt Date: 20171112
  Transmission Date: 20180320
  Serious: No
  Sender: FDA-Public Use
  Company Number: US-TEVA-678842USA

PATIENT
  Sex: Female
  Weight: 64.92 kg

DRUGS (4)
  1. SYNTHROID [Concomitant]
     Active Substance: LEVOTHYROXINE SODIUM
     Indication: THYROID DISORDER
     Dates: start: 1997
  2. COPAXONE [Suspect]
     Active Substance: GLATIRAMER ACETATE
  3. COPAXONE [Suspect]
     Active Substance: GLATIRAMER ACETATE
     Indication: MULTIPLE SCLEROSIS
     Dates: start: 201205
  4. AMLODIPINE [Concomitant]
     Active Substance: AMLODIPINE BESYLATE
     Indication: BLOOD PRESSURE MEASUREMENT
     Dates: start: 2012

REACTIONS (3)
  - Back pain [Recovered/Resolved]
  - Bronchitis chronic [Recovered/Resolved]
  - Chronic sinusitis [Recovered/Resolved]
